FAERS Safety Report 25429029 (Version 2)
Quarter: 2025Q2

REPORT INFORMATION
  Report Type: Spontaneous
  Country: US (occurrence: US)
  Receive Date: 20250612
  Receipt Date: 20250620
  Transmission Date: 20250716
  Serious: No
  Sender: PFIZER
  Company Number: US-PFIZER INC-202500119319

PATIENT
  Age: 77 Year
  Sex: Male

DRUGS (1)
  1. NURTEC ODT [Suspect]
     Active Substance: RIMEGEPANT SULFATE
     Indication: Migraine
     Dosage: 75 MG, ALTERNATE DAY (EVERY OTHER DAY)
     Dates: start: 20250602

REACTIONS (5)
  - Visual impairment [Recovering/Resolving]
  - Palpitations [Recovering/Resolving]
  - Sensory disturbance [Recovering/Resolving]
  - Chromatopsia [Recovering/Resolving]
  - Vitreous floaters [Recovering/Resolving]
